FAERS Safety Report 8251202-8 (Version None)
Quarter: 2012Q2

REPORT INFORMATION
  Report Type: 
  Country: None (occurrence: None)
  Receive Date: 20120402
  Receipt Date: 20120328
  Transmission Date: 20120825
  Serious: Yes (Hospitalization, Disabling, Other)
  Sender: FDA-Public Use
  Company Number: US-MERCK-1103USA00941

PATIENT
  Age: 64 Year
  Sex: Female

DRUGS (7)
  1. SUCLOR [Concomitant]
     Indication: SEASONAL ALLERGY
     Route: 065
     Dates: start: 20050101, end: 20080101
  2. HORMONES (UNSPECIFIED) [Concomitant]
     Route: 065
     Dates: start: 20010101
  3. FOSAMAX [Suspect]
     Indication: OSTEOPOROSIS
     Route: 048
     Dates: start: 20030101, end: 20070201
  4. LEVOTHROID [Concomitant]
     Indication: HYPOTHYROIDISM
     Route: 065
     Dates: start: 20040101
  5. CALCIUM (UNSPECIFIED) [Concomitant]
     Route: 065
     Dates: start: 20050101
  6. FOSAMAX [Suspect]
     Route: 048
     Dates: start: 20090101, end: 20100101
  7. FOSAMAX PLUS D [Suspect]
     Indication: OSTEOPOROSIS
     Route: 048
     Dates: start: 20070101, end: 20081201

REACTIONS (8)
  - HERPES ZOSTER [None]
  - FRACTURE [None]
  - FRACTURE NONUNION [None]
  - DEPRESSION [None]
  - LOW TURNOVER OSTEOPATHY [None]
  - ADVERSE EVENT [None]
  - TOOTH DISORDER [None]
  - FEMUR FRACTURE [None]
